FAERS Safety Report 8401883-0 (Version None)
Quarter: 2012Q2

REPORT INFORMATION
  Report Type: 
  Country: None (occurrence: None)
  Receive Date: 20120601
  Receipt Date: 20110531
  Transmission Date: 20120825
  Serious: No
  Sender: FDA-Public Use
  Company Number: US-ABBOTT-11P-163-0804627-00

PATIENT
  Sex: Male

DRUGS (1)
  1. DRONABINOL [Suspect]
     Indication: PRODUCT USED FOR UNKNOWN INDICATION
     Dosage: DAILY DOSE:  UNKNOWN, AS USED: 5 MILLIGRAM(S)
     Route: 065

REACTIONS (1)
  - MEDICATION RESIDUE [None]
